FAERS Safety Report 15607352 (Version 2)
Quarter: 2018Q4

REPORT INFORMATION
  Report Type: Spontaneous
  Country: ZA (occurrence: ZA)
  Receive Date: 20181112
  Receipt Date: 20181122
  Transmission Date: 20190205
  Serious: Yes (Death)
  Sender: FDA-Public Use
  Company Number: ZA-PFIZER INC-2018462470

PATIENT
  Age: 73 Year
  Sex: Female

DRUGS (8)
  1. AZOR [ALPRAZOLAM] [Suspect]
     Active Substance: ALPRAZOLAM
     Dosage: 1 MG, UNK
  2. PREMARIN [Suspect]
     Active Substance: ESTROGENS, CONJUGATED
     Dosage: 0.625 MG, UNK
  3. SIMVACOR [Suspect]
     Active Substance: SIMVASTATIN
     Dosage: 40 MG, UNK
  4. ADCO-RETIC [Suspect]
     Active Substance: AMILORIDE HYDROCHLORIDE\HYDROCHLOROTHIAZIDE
     Dosage: 5/50 MG, UNK
  5. TRANQIPAM [Suspect]
     Active Substance: LORAZEPAM
     Dosage: 1 MG, UNK
  6. CARDUGEN [Suspect]
     Active Substance: DOXAZOSIN\DOXAZOSIN MESYLATE
     Dosage: 4 MG, UNK
  7. DISPRIN CARDIOCARE [Suspect]
     Active Substance: ASPIRIN
     Dosage: 100 MG, UNK
  8. CARDICOR [Suspect]
     Active Substance: BISOPROLOL
     Dosage: 2.5 MG, UNK

REACTIONS (2)
  - Arterial thrombosis [Fatal]
  - Fatigue [Unknown]

NARRATIVE: CASE EVENT DATE: 20181017
